FAERS Safety Report 24109952 (Version 1)
Quarter: 2024Q3

REPORT INFORMATION
  Report Type: Spontaneous
  Country: US (occurrence: None)
  Receive Date: 20240717
  Receipt Date: 20240717
  Transmission Date: 20241017
  Serious: No
  Sender: Public
  Company Number: None

PATIENT
  Age: 74 Year
  Sex: Male
  Weight: 62.55 kg

DRUGS (4)
  1. AMOXICILLIN [Suspect]
     Active Substance: AMOXICILLIN
     Indication: Antibiotic therapy
     Dosage: 21 TABLETS 3 TIMES A DAY ORAL ?
     Route: 048
     Dates: start: 20240715, end: 20240716
  2. liquid vitamins [Concomitant]
  3. minerals supplements [Concomitant]
  4. herbal infusion + organic food [Concomitant]

REACTIONS (2)
  - Headache [None]
  - Therapy cessation [None]

NARRATIVE: CASE EVENT DATE: 20240715
